FAERS Safety Report 8892836 (Version 1)
Quarter: 2012Q4

REPORT INFORMATION
  Report Type: Spontaneous
  Country: US (occurrence: None)
  Receive Date: 20121106
  Receipt Date: 20121106
  Transmission Date: 20130627
  Serious: Yes (Hospitalization)
  Sender: FDA-Public Use
  Company Number: None

PATIENT
  Age: 50 Year
  Sex: Female
  Weight: 51 kg

DRUGS (2)
  1. MULTIVITAMIN [Suspect]
     Dosage: 1 pill daily oral
     Route: 048
     Dates: start: 20120914, end: 20121025
  2. MULTIVITAMIN [Suspect]

REACTIONS (3)
  - Cellulitis [None]
  - Breast mass [None]
  - Skin ulcer [None]
